FAERS Safety Report 8873760 (Version 1)
Quarter: 2012Q4

REPORT INFORMATION
  Report Type: 
  Country: US (occurrence: US)
  Receive Date: 20121026
  Receipt Date: 20121026
  Transmission Date: 20130627
  Serious: No
  Sender: FDA-Public Use
  Company Number: US-AMGEN-USASP2012045326

PATIENT
  Age: 60 Year
  Sex: Male
  Weight: 90.7 kg

DRUGS (7)
  1. ENBREL [Suspect]
     Indication: PRODUCT USED FOR UNKNOWN INDICATION
     Dosage: 50 mg, qwk
     Route: 058
  2. CRESTOR [Concomitant]
     Dosage: 10 mg, UNK
  3. METHOTREXATE [Concomitant]
     Dosage: 2.5 mg, UNK
  4. FOLIC ACID GENERIC [Concomitant]
     Dosage: UNK
  5. FISH OIL [Concomitant]
     Dosage: UNK
  6. ASPIRIN (E.C.) [Concomitant]
     Dosage: 81 mg, UNK
  7. OCUTABS WITH LUTEIN [Concomitant]
     Dosage: UNK

REACTIONS (1)
  - Feeling cold [Unknown]
